FAERS Safety Report 18518081 (Version 1)
Quarter: 2020Q4

REPORT INFORMATION
  Report Type: Spontaneous
  Country: DE (occurrence: DE)
  Receive Date: 20201118
  Receipt Date: 20201118
  Transmission Date: 20210114
  Serious: Yes (Other)
  Sender: FDA-Public Use
  Company Number: DE-PFIZER INC-2020450060

PATIENT
  Age: 53 Year
  Sex: Female

DRUGS (1)
  1. CABASERIL [Suspect]
     Active Substance: CABERGOLINE
     Indication: PROLACTIN-PRODUCING PITUITARY TUMOUR
     Dosage: 0.5 MG, 1X/WEEK

REACTIONS (4)
  - Joint swelling [Unknown]
  - Bone pain [Unknown]
  - Depressed level of consciousness [Unknown]
  - Drug ineffective [Unknown]
